FAERS Safety Report 23539052 (Version 2)
Quarter: 2024Q1

REPORT INFORMATION
  Report Type: Spontaneous
  Country: CA (occurrence: CA)
  Receive Date: 20240219
  Receipt Date: 20240304
  Transmission Date: 20240410
  Serious: Yes (Other)
  Sender: FDA-Public Use
  Company Number: CA-PFIZER INC-202400039747

PATIENT
  Age: 52 Year
  Sex: Female
  Weight: 70.748 kg

DRUGS (2)
  1. METHOTREXATE SODIUM [Suspect]
     Active Substance: METHOTREXATE SODIUM
     Indication: Crohn^s disease
     Dosage: 1 DF
  2. METHOTREXATE SODIUM [Suspect]
     Active Substance: METHOTREXATE SODIUM
     Indication: Anorectal disorder
     Dosage: 25 MG, WEEKLY
     Dates: start: 202309

REACTIONS (7)
  - Condition aggravated [Unknown]
  - Abscess [Unknown]
  - Treatment failure [Unknown]
  - Arthralgia [Unknown]
  - Dry eye [Unknown]
  - Off label use [Unknown]
  - Drug ineffective for unapproved indication [Unknown]
